FAERS Safety Report 23928729 (Version 4)
Quarter: 2025Q1

REPORT INFORMATION
  Report Type: Report from Study
  Country: CO (occurrence: CO)
  Receive Date: 20240531
  Receipt Date: 20250314
  Transmission Date: 20250408
  Serious: Yes (Hospitalization, Other)
  Sender: ABBVIE
  Company Number: CO-ABBVIE-5782663

PATIENT
  Age: 58 Year
  Sex: Male

DRUGS (3)
  1. SKYRIZI [Suspect]
     Active Substance: RISANKIZUMAB-RZAA
     Indication: Psoriasis
     Route: 058
     Dates: start: 20220408, end: 202402
  2. SKYRIZI [Suspect]
     Active Substance: RISANKIZUMAB-RZAA
     Route: 058
     Dates: start: 20240510, end: 20241107
  3. SKYRIZI [Suspect]
     Active Substance: RISANKIZUMAB-RZAA
     Route: 058
     Dates: start: 20240408, end: 20240510

REACTIONS (11)
  - Upper limb fracture [Recovering/Resolving]
  - Road traffic accident [Unknown]
  - Post procedural inflammation [Recovering/Resolving]
  - Procedural pain [Recovering/Resolving]
  - Musculoskeletal disorder [Unknown]
  - Removal of internal fixation [Unknown]
  - Post procedural haemorrhage [Unknown]
  - Wound haemorrhage [Recovering/Resolving]
  - Periarthritis [Unknown]
  - Pain [Unknown]
  - Musculoskeletal disorder [Unknown]

NARRATIVE: CASE EVENT DATE: 20240101
